FAERS Safety Report 22141862 (Version 1)
Quarter: 2023Q1

REPORT INFORMATION
  Report Type: Spontaneous
  Country: CN (occurrence: CN)
  Receive Date: 20230327
  Receipt Date: 20230327
  Transmission Date: 20230418
  Serious: Yes (Hospitalization, Other)
  Sender: FDA-Public Use
  Company Number: CN-SA-SAC20230323001610

PATIENT
  Age: 91 Year
  Sex: Male
  Weight: 60 kg

DRUGS (2)
  1. AMARYL [Suspect]
     Active Substance: GLIMEPIRIDE
     Indication: Type 2 diabetes mellitus
     Dosage: 2 MG, QD
     Route: 048
     Dates: start: 20210909, end: 20230123
  2. ACARBOSE [Concomitant]
     Active Substance: ACARBOSE
     Indication: Type 2 diabetes mellitus
     Dosage: 0.1 G, TID
     Dates: start: 20210909, end: 20230209

REACTIONS (7)
  - Hypoglycaemia [Recovering/Resolving]
  - Hypertension [Recovering/Resolving]
  - Loss of consciousness [Recovered/Resolved]
  - Dysstasia [Recovering/Resolving]
  - Vision blurred [Recovering/Resolving]
  - Confusional state [Recovering/Resolving]
  - Asthenia [Recovering/Resolving]

NARRATIVE: CASE EVENT DATE: 20230122
